FAERS Safety Report 6919427-9 (Version None)
Quarter: 2010Q3

REPORT INFORMATION
  Report Type: 
  Country: None (occurrence: None)
  Receive Date: 20100811
  Receipt Date: 20100728
  Transmission Date: 20110219
  Serious: Yes (Death, Other)
  Sender: FDA-Public Use
  Company Number: B0584446A

PATIENT
  Sex: Female
  Weight: 40 kg

DRUGS (4)
  1. TYKERB [Suspect]
     Indication: BREAST CANCER
     Dosage: 1250MG PER DAY
     Route: 048
     Dates: start: 20090625, end: 20090804
  2. TYKERB [Suspect]
     Dosage: 1000MG PER DAY
     Route: 048
     Dates: start: 20090805, end: 20091016
  3. XELODA [Concomitant]
     Dosage: 1800MG PER DAY
     Route: 048
     Dates: start: 20090625, end: 20090804
  4. XELODA [Concomitant]
     Dosage: 1200MG PER DAY
     Route: 048
     Dates: start: 20090805, end: 20091016

REACTIONS (2)
  - DIARRHOEA [None]
  - NEOPLASM MALIGNANT [None]
